FAERS Safety Report 16852628 (Version 3)
Quarter: 2019Q4

REPORT INFORMATION
  Report Type: Spontaneous
  Country: JP (occurrence: JP)
  Receive Date: 20190925
  Receipt Date: 20191107
  Transmission Date: 20200122
  Serious: Yes (Death)
  Sender: FDA-Public Use
  Company Number: JP-JNJFOC-20190926796

PATIENT
  Age: 58 Year
  Sex: Female

DRUGS (6)
  1. XEPLION [Suspect]
     Active Substance: PALIPERIDONE PALMITATE
     Dosage: GLUTEAL MUSCLE
     Route: 030
     Dates: start: 20160223, end: 20160223
  2. XEPLION [Suspect]
     Active Substance: PALIPERIDONE PALMITATE
     Dosage: GLUTEAL MUSCLE
     Route: 030
     Dates: start: 20160322, end: 20190903
  3. XEPLION [Suspect]
     Active Substance: PALIPERIDONE PALMITATE
     Indication: SCHIZOPHRENIA
     Dosage: GLUTEAL MUSCLE
     Route: 030
     Dates: start: 20160126, end: 20160126
  4. LUNESTA [Concomitant]
     Active Substance: ESZOPICLONE
     Route: 048
     Dates: end: 20190903
  5. RIVOTRIL [Concomitant]
     Active Substance: CLONAZEPAM
     Route: 048
     Dates: end: 20190903
  6. BIPERIDEN HYDROCHLORIDE [Concomitant]
     Active Substance: BIPERIDEN HYDROCHLORIDE
     Route: 048
     Dates: end: 20190903

REACTIONS (1)
  - Sudden death [Fatal]
